FAERS Safety Report 20550769 (Version 1)
Quarter: 2022Q1

REPORT INFORMATION
  Report Type: Report from Study
  Country: ES (occurrence: ES)
  Receive Date: 20220304
  Receipt Date: 20220304
  Transmission Date: 20220423
  Serious: Yes (Death, Other)
  Sender: FDA-Public Use
  Company Number: ES-CELLTRION INC.-2018ES021829

PATIENT

DRUGS (18)
  1. RITUXIMAB [Suspect]
     Active Substance: RITUXIMAB
     Indication: Product used for unknown indication
     Dosage: 4 DOSES
     Route: 065
  2. RITUXIMAB [Suspect]
     Active Substance: RITUXIMAB
     Dosage: 4 DOSES
     Route: 065
  3. RITUXIMAB [Suspect]
     Active Substance: RITUXIMAB
     Dosage: 4 DOSES
     Route: 065
  4. RITUXIMAB [Suspect]
     Active Substance: RITUXIMAB
     Dosage: 4 DOSES
     Route: 065
  5. LENIOLISIB [Suspect]
     Active Substance: LENIOLISIB
     Indication: Colitis
     Dosage: UNK
  6. LENIOLISIB [Suspect]
     Active Substance: LENIOLISIB
     Indication: Infection
     Dosage: UNK
  7. LENIOLISIB [Suspect]
     Active Substance: LENIOLISIB
     Indication: Activated PI3 kinase delta syndrome
     Dosage: 70 MG, BID
     Route: 065
     Dates: start: 20180705, end: 20180712
  8. LENIOLISIB [Suspect]
     Active Substance: LENIOLISIB
     Indication: Lymphoproliferative disorder
     Dosage: UNK
  9. RAPAMYCIN [Suspect]
     Active Substance: SIROLIMUS
     Indication: Product used for unknown indication
     Route: 065
  10. PIPERACILLIN AND TAZOBACTAM [Concomitant]
     Active Substance: PIPERACILLIN SODIUM\TAZOBACTAM SODIUM
     Indication: Febrile neutropenia
     Dosage: 75 MG/KG, Q6H
     Route: 065
     Dates: start: 20180707, end: 20180711
  11. GANCICLOVIR [Concomitant]
     Active Substance: GANCICLOVIR
     Indication: Cytomegalovirus enteritis
     Route: 065
  12. LABETALOL [Concomitant]
     Active Substance: LABETALOL\LABETALOL HYDROCHLORIDE
     Indication: Hypertension
     Dosage: 10 MG, Q8H
     Route: 065
     Dates: start: 20180705, end: 20180712
  13. ACYCLOVIR [Concomitant]
     Active Substance: ACYCLOVIR
     Indication: Prophylaxis
     Dosage: 800 MG/24HR
     Route: 065
     Dates: start: 20180705, end: 20180712
  14. ANIDULAFUNGIN [Concomitant]
     Active Substance: ANIDULAFUNGIN
     Indication: Fungal infection
     Dosage: 100 MG/24HR
     Route: 065
     Dates: start: 20180705
  15. METHYLPREDNISOLONE [Concomitant]
     Active Substance: METHYLPREDNISOLONE
     Indication: Product used for unknown indication
     Dosage: 20 MG, Q12H
     Route: 065
     Dates: start: 20180705
  16. COTRIMOXAZOLE [Concomitant]
     Active Substance: SULFAMETHOXAZOLE\TRIMETHOPRIM
     Indication: Prophylaxis
     Dosage: UNK, 160/800MG
     Route: 065
     Dates: start: 20180705, end: 20180712
  17. LEVOMEPROMAZINE [Concomitant]
     Active Substance: LEVOMEPROMAZINE
     Indication: Anxiety
     Dosage: 16 MG, Q12H
     Route: 065
     Dates: start: 20180705, end: 20180712
  18. URSODIOL [Concomitant]
     Active Substance: URSODIOL
     Indication: Hyperuricaemia
     Dosage: 150 MG, Q8H
     Route: 065
     Dates: start: 20180705, end: 20180712

REACTIONS (2)
  - Malnutrition [Fatal]
  - B-cell lymphoma [Fatal]
